FAERS Safety Report 4959590-2 (Version None)
Quarter: 2006Q1

REPORT INFORMATION
  Report Type: 
  Country: None (occurrence: None)
  Receive Date: 20060324
  Receipt Date: 20060316
  Transmission Date: 20060701
  Serious: Yes (Other)
  Sender: FDA-Public Use
  Company Number: EM2006-0082

PATIENT
  Age: 3 Year
  Sex: Female

DRUGS (5)
  1. TOBI [Suspect]
     Indication: TRACHEITIS
     Dosage: ONE MONTH ON, ONE MONTH OFF, INHALATION
     Route: 055
     Dates: start: 20060206, end: 20060301
  2. TOBI [Suspect]
     Indication: TRACHEITIS
     Dosage: ONE MONTH ON, ONE MONTH OFF, INHALATION
     Route: 055
     Dates: start: 20051219
  3. SYNERGIST [Suspect]
     Indication: RESPIRATORY SYNCYTIAL VIRUS INFECTION
  4. PULMICORT [Concomitant]
  5. XOPENEX [Concomitant]

REACTIONS (8)
  - BRONCHOMALACIA [None]
  - BRONCHOSPASM [None]
  - HYPOPNOEA [None]
  - LUNG DISORDER [None]
  - MALAISE [None]
  - OXYGEN SATURATION DECREASED [None]
  - PHARYNGITIS [None]
  - PHARYNGITIS STREPTOCOCCAL [None]
